FAERS Safety Report 11219369 (Version 2)
Quarter: 2015Q2

REPORT INFORMATION
  Report Type: Spontaneous
  Country: US (occurrence: US)
  Receive Date: 20150625
  Receipt Date: 20150625
  Transmission Date: 20150821
  Serious: No
  Sender: FDA-Public Use
  Company Number: US-BAYER-2015-329625

PATIENT
  Age: 2 Year
  Sex: Male

DRUGS (2)
  1. FINACEA [Suspect]
     Active Substance: AZELAIC ACID
     Indication: ROSACEA
     Dosage: 10 %, UNK
     Route: 061
     Dates: start: 20150529, end: 20150531
  2. IVERMECTIN. [Suspect]
     Active Substance: IVERMECTIN
     Indication: ROSACEA
     Dosage: 1 %, UNK
     Route: 061
     Dates: start: 20150529, end: 20150531

REACTIONS (1)
  - Exposure during breast feeding [None]
